FAERS Safety Report 10964109 (Version 2)
Quarter: 2015Q2

REPORT INFORMATION
  Report Type: Spontaneous
  Country: US (occurrence: US)
  Receive Date: 20150329
  Receipt Date: 20150524
  Transmission Date: 20150821
  Serious: No
  Sender: FDA-Public Use
  Company Number: US-JNJFOC-20120310842

PATIENT
  Age: 41 Year
  Sex: Female
  Weight: 68.04 kg

DRUGS (1)
  1. DURAGESIC [Suspect]
     Active Substance: FENTANYL
     Indication: PAIN
     Route: 062
     Dates: start: 20120125

REACTIONS (7)
  - Pruritus [Recovered/Resolved]
  - Application site rash [Recovered/Resolved]
  - Hot flush [Not Recovered/Not Resolved]
  - Menopause [Not Recovered/Not Resolved]
  - Back pain [Recovered/Resolved]
  - Night sweats [Not Recovered/Not Resolved]
  - Product quality issue [Unknown]

NARRATIVE: CASE EVENT DATE: 2011
